FAERS Safety Report 20107653 (Version 1)
Quarter: 2021Q4

REPORT INFORMATION
  Report Type: Spontaneous
  Country: US (occurrence: None)
  Receive Date: 20211124
  Receipt Date: 20211124
  Transmission Date: 20220303
  Serious: Yes (Hospitalization)
  Sender: FDA-Public Use
  Company Number: None

PATIENT
  Sex: Male
  Weight: 97.7 kg

DRUGS (6)
  1. CYCLOPHOSPHAMIDE [Suspect]
     Active Substance: CYCLOPHOSPHAMIDE
     Dates: end: 20211025
  2. MERCAPTOPURINE [Suspect]
     Active Substance: MERCAPTOPURINE
     Dates: end: 20211007
  3. CYTARABINE [Suspect]
     Active Substance: CYTARABINE
     Dates: end: 20211104
  4. METHOTREXATE [Suspect]
     Active Substance: METHOTREXATE
     Dates: end: 20210920
  5. ONCASPAR [Suspect]
     Active Substance: PEGASPARGASE
  6. VINCRISTINE SULFATE [Suspect]
     Active Substance: VINCRISTINE SULFATE
     Dates: end: 20211108

REACTIONS (12)
  - Abscess limb [None]
  - Cholecystitis [None]
  - Bladder hypertrophy [None]
  - Human rhinovirus test positive [None]
  - Pancytopenia [None]
  - Escherichia test positive [None]
  - Bacteroides test positive [None]
  - Tachycardia [None]
  - Hypovolaemia [None]
  - Neutropenia [None]
  - Anal abscess [None]
  - Orthostatic hypotension [None]

NARRATIVE: CASE EVENT DATE: 20211116
